FAERS Safety Report 5780418-5 (Version None)
Quarter: 2008Q2

REPORT INFORMATION
  Report Type: 
  Country: None (occurrence: None)
  Receive Date: 20080620
  Receipt Date: 20080616
  Transmission Date: 20081010
  Serious: Yes (Hospitalization)
  Sender: FDA-Public Use
  Company Number: JP-MERCK-0806USA03000

PATIENT
  Age: 91 Year
  Sex: Female

DRUGS (4)
  1. HYZAAR [Suspect]
     Indication: HYPERTENSION
     Route: 048
     Dates: start: 20080425, end: 20080529
  2. BENIDIPINE HYDROCHLORIDE [Concomitant]
     Route: 048
     Dates: start: 20061016
  3. THEO-DUR [Concomitant]
     Route: 048
     Dates: start: 20061016
  4. PRAVASTATIN [Concomitant]
     Route: 048
     Dates: start: 20061016

REACTIONS (2)
  - HYPOKALAEMIA [None]
  - RESPIRATORY FAILURE [None]
